FAERS Safety Report 5879165-0 (Version None)
Quarter: 2008Q3

REPORT INFORMATION
  Report Type: 
  Country: None (occurrence: None)
  Receive Date: 20080910
  Receipt Date: 20080829
  Transmission Date: 20090109
  Serious: Yes (Death, Life-Threatening, Hospitalization)
  Sender: FDA-Public Use
  Company Number: 94929

PATIENT
  Age: 3 Year
  Sex: Male

DRUGS (2)
  1. ACETAMINOPHEN [Suspect]
     Dosage: 2.2G/ORAL
     Route: 048
  2. ACETAMINOPHEN [Suspect]
     Dosage: RECTAL
     Route: 054

REACTIONS (2)
  - LIVER INJURY [None]
  - OVERDOSE [None]
